FAERS Safety Report 16155957 (Version 1)
Quarter: 2019Q2

REPORT INFORMATION
  Report Type: Spontaneous
  Country: US (occurrence: US)
  Receive Date: 20190404
  Receipt Date: 20190404
  Transmission Date: 20190711
  Serious: Yes (Other)
  Sender: FDA-Public Use
  Company Number: US-MALLINCKRODT-T201902762

PATIENT
  Sex: Male

DRUGS (1)
  1. FENTANYL TRANSDERMAL SYSTEM [Suspect]
     Active Substance: FENTANYL
     Indication: BREAKTHROUGH PAIN
     Dosage: UNK, 3 DAYS
     Route: 062
     Dates: end: 2019

REACTIONS (4)
  - Breakthrough pain [Unknown]
  - Product adhesion issue [Unknown]
  - Loss of consciousness [Unknown]
  - Drug ineffective [Unknown]
